FAERS Safety Report 7244063-7 (Version None)
Quarter: 2011Q1

REPORT INFORMATION
  Report Type: 
  Country: None (occurrence: None)
  Receive Date: 20110125
  Receipt Date: 20110120
  Transmission Date: 20110831
  Serious: Yes (Death)
  Sender: FDA-Public Use
  Company Number: US-MEDIMMUNE-MEDI-0011999

PATIENT
  Sex: Female
  Weight: 2.42 kg

DRUGS (1)
  1. SYNAGIS [Suspect]
     Dates: start: 20101118, end: 20101118

REACTIONS (1)
  - SUDDEN INFANT DEATH SYNDROME [None]
